FAERS Safety Report 8004531-7 (Version None)
Quarter: 2011Q4

REPORT INFORMATION
  Report Type: 
  Country: None (occurrence: None)
  Receive Date: 20111223
  Receipt Date: 20111220
  Transmission Date: 20120403
  Serious: Yes (Other)
  Sender: FDA-Public Use
  Company Number: US-RB-030920-11

PATIENT
  Age: 23 Year
  Sex: Male

DRUGS (2)
  1. MUCINEX [Suspect]
     Indication: NASOPHARYNGITIS
     Dosage: 11.29.11 EVERY 12 HOURS
     Route: 045
     Dates: start: 20111129
  2. NYQUIL [Concomitant]

REACTIONS (1)
  - EPISTAXIS [None]
